FAERS Safety Report 23222104 (Version 1)
Quarter: 2023Q4

REPORT INFORMATION
  Report Type: Spontaneous
  Country: US (occurrence: US)
  Receive Date: 20231123
  Receipt Date: 20231123
  Transmission Date: 20240110
  Serious: No
  Sender: FDA-Public Use
  Company Number: US-ABBVIE-5509405

PATIENT
  Sex: Female

DRUGS (2)
  1. SAPHRIS [Suspect]
     Active Substance: ASENAPINE MALEATE
     Indication: Product used for unknown indication
     Route: 048
  2. SECUADO [Suspect]
     Active Substance: ASENAPINE
     Indication: Bipolar disorder
     Dosage: GENERAL
     Route: 065

REACTIONS (1)
  - Adverse drug reaction [Unknown]
